FAERS Safety Report 21504434 (Version 2)
Quarter: 2022Q4

REPORT INFORMATION
  Report Type: Spontaneous
  Country: JP (occurrence: JP)
  Receive Date: 20221025
  Receipt Date: 20221107
  Transmission Date: 20230112
  Serious: Yes (Hospitalization, Other)
  Sender: FDA-Public Use
  Company Number: JP-TEVA-2022-JP-2819399

PATIENT
  Age: 45 Year
  Sex: Male

DRUGS (2)
  1. CLOPIDOGREL [Suspect]
     Active Substance: CLOPIDOGREL BISULFATE
     Indication: Angina pectoris
     Route: 048
  2. LANSOPRAZOLE [Suspect]
     Active Substance: LANSOPRAZOLE
     Indication: Gastroduodenal ulcer
     Route: 048
     Dates: start: 200606

REACTIONS (3)
  - Gastric neuroendocrine carcinoma [Recovering/Resolving]
  - Gastrointestinal polyp haemorrhage [Unknown]
  - Anaemia [Recovering/Resolving]
